FAERS Safety Report 8063307-5 (Version None)
Quarter: 2012Q1

REPORT INFORMATION
  Report Type: 
  Country: None (occurrence: None)
  Receive Date: 20120123
  Receipt Date: 20120117
  Transmission Date: 20120608
  Serious: Yes (Hospitalization)
  Sender: FDA-Public Use
  Company Number: US-PFIZER INC-2012013432

PATIENT
  Sex: Male
  Weight: 45.351 kg

DRUGS (1)
  1. BENEFIX [Suspect]
     Indication: FACTOR IX DEFICIENCY
     Dosage: 3000 IU, 3X/WEEK
     Dates: start: 20070101

REACTIONS (6)
  - FACIAL BONES FRACTURE [None]
  - ROAD TRAFFIC ACCIDENT [None]
  - SKULL FRACTURE [None]
  - UPPER LIMB FRACTURE [None]
  - HAEMORRHAGE INTRACRANIAL [None]
  - SPINAL COLUMN INJURY [None]
